FAERS Safety Report 8449130-8 (Version None)
Quarter: 2012Q2

REPORT INFORMATION
  Report Type: 
  Country: None (occurrence: None)
  Receive Date: 20120619
  Receipt Date: 20120606
  Transmission Date: 20120825
  Serious: No
  Sender: FDA-Public Use
  Company Number: US-B.I. PHARMACEUTICALS,INC./RIDGEFIELD-2012-BP-00143BP

PATIENT
  Sex: Male

DRUGS (9)
  1. HYDRALAZINE HYDROCHLORIDE [Concomitant]
     Dosage: 150 MG
     Route: 048
  2. METOPROLOL SUCCINATE [Concomitant]
     Indication: PULSE ABNORMAL
  3. PRADAXA [Suspect]
     Indication: ANTICOAGULANT THERAPY
  4. METOPROLOL SUCCINATE [Concomitant]
     Indication: ATRIAL FIBRILLATION
     Dosage: 25 MG
     Route: 048
  5. METOPROLOL SUCCINATE [Concomitant]
     Indication: ARRHYTHMIA
     Route: 048
  6. HYDRALAZINE HYDROCHLORIDE [Concomitant]
     Indication: HYPERTENSION
     Dosage: 225 MG
     Route: 048
  7. METOPROLOL SUCCINATE [Concomitant]
     Indication: HYPERTENSION
  8. PRADAXA [Suspect]
     Indication: ATRIAL FIBRILLATION
     Dosage: 300 MG
     Route: 048
     Dates: start: 20100101
  9. PACERONE [Concomitant]
     Indication: CARDIAC DISORDER
     Dosage: 200 MG
     Route: 048

REACTIONS (9)
  - SWELLING FACE [None]
  - EYE HAEMORRHAGE [None]
  - GINGIVAL BLEEDING [None]
  - EAR DISCOMFORT [None]
  - HAEMORRHOIDAL HAEMORRHAGE [None]
  - NAUSEA [None]
  - HEADACHE [None]
  - CHEST DISCOMFORT [None]
  - TINNITUS [None]
